FAERS Safety Report 13860377 (Version 1)
Quarter: 2017Q3

REPORT INFORMATION
  Report Type: Spontaneous
  Country: US (occurrence: US)
  Receive Date: 20170811
  Receipt Date: 20170811
  Transmission Date: 20171127
  Serious: Yes (Other)
  Sender: FDA-Public Use
  Company Number: US-AUROBINDO-AUR-APU-2017-38476

PATIENT
  Age: 50 Year
  Sex: Female
  Weight: 62.6 kg

DRUGS (9)
  1. GRALISE [Suspect]
     Active Substance: GABAPENTIN
     Indication: TRIGEMINAL NEURALGIA
     Dosage: 1800 MG, QD, IN THE AFTERNOON
     Route: 048
     Dates: start: 201610
  2. DIGOXIN. [Suspect]
     Active Substance: DIGOXIN
     Indication: LOSS OF CONSCIOUSNESS
     Dosage: 0.25 MCG, ONCE A DAY IN MORNING
     Route: 048
     Dates: start: 201403
  3. TRILEPTAL [Concomitant]
     Active Substance: OXCARBAZEPINE
     Indication: PRODUCT USED FOR UNKNOWN INDICATION
     Route: 065
  4. L-THYROXINE                        /00068001/ [Concomitant]
     Active Substance: LEVOTHYROXINE
     Indication: PRODUCT USED FOR UNKNOWN INDICATION
     Dosage: UNK
     Route: 065
     Dates: start: 2011
  5. REQUIP [Concomitant]
     Active Substance: ROPINIROLE HYDROCHLORIDE
     Indication: PRODUCT USED FOR UNKNOWN INDICATION
     Dosage: 0.25 MCG, UNK
     Route: 065
     Dates: start: 201701
  6. TOPAMAX [Concomitant]
     Active Substance: TOPIRAMATE
     Indication: PRODUCT USED FOR UNKNOWN INDICATION
     Dosage: UNK
     Route: 065
     Dates: start: 2007
  7. METHADONE [Concomitant]
     Active Substance: METHADONE HYDROCHLORIDE
     Indication: PRODUCT USED FOR UNKNOWN INDICATION
     Dosage: UNK
     Route: 065
     Dates: start: 2009
  8. OXYCODONE TABLET [Suspect]
     Active Substance: OXYCODONE
     Indication: FACIAL PAIN
     Dosage: 15 - 30 MG
     Route: 048
     Dates: start: 200701
  9. NORTRIPTYLINE CAPSULES [Suspect]
     Active Substance: NORTRIPTYLINE HYDROCHLORIDE
     Indication: FACIAL PAIN
     Dosage: 50 MG IN AFTERNOON AND 75 MG IN EVENING
     Route: 048
     Dates: start: 200701

REACTIONS (4)
  - Drug ineffective [Unknown]
  - Drug prescribing error [Unknown]
  - Diverticulitis [Not Recovered/Not Resolved]
  - Product use in unapproved indication [Unknown]

NARRATIVE: CASE EVENT DATE: 201610
